FAERS Safety Report 5410101-7 (Version None)
Quarter: 2007Q3

REPORT INFORMATION
  Report Type: 
  Country: None (occurrence: None)
  Receive Date: 20070713
  Receipt Date: 20070413
  Transmission Date: 20080115
  Serious: No
  Sender: FDA-Public Use
  Company Number: 2007SP001340

PATIENT
  Age: 55 Year
  Sex: Male

DRUGS (3)
  1. LUNESTA [Suspect]
     Dosage: 2 MG;ORAL; 3 MG; ORAL; 6 MG;ORAL
     Route: 048
     Dates: start: 20060101
  2. LUNESTA [Suspect]
     Dosage: 2 MG;ORAL; 3 MG; ORAL; 6 MG;ORAL
     Route: 048
     Dates: start: 20060101
  3. LUNESTA [Suspect]
     Dosage: 2 MG;ORAL; 3 MG; ORAL; 6 MG;ORAL
     Route: 048
     Dates: start: 20060117

REACTIONS (2)
  - DRUG INEFFECTIVE [None]
  - INSOMNIA [None]
